FAERS Safety Report 9134038 (Version 4)
Quarter: 2013Q2

REPORT INFORMATION
  Report Type: Spontaneous
  Country: JP (occurrence: JP)
  Receive Date: 20130304
  Receipt Date: 20130606
  Transmission Date: 20140414
  Serious: Yes (Hospitalization, Other)
  Sender: FDA-Public Use
  Company Number: JP-009507513-1303JPN000532

PATIENT
  Age: 59 Year
  Sex: Female
  Weight: 64 kg

DRUGS (10)
  1. PEGINTRON [Suspect]
     Indication: CHRONIC HEPATITIS C
     Dosage: 1.5 MICROGRAM PER KILOGRAM, QW
     Route: 058
     Dates: start: 20130123, end: 20130123
  2. PEGINTRON [Suspect]
     Dosage: 0.95 MICROGRAM PER KILOGRAM, QW
     Route: 058
     Dates: start: 20130130
  3. REBETOL [Suspect]
     Indication: CHRONIC HEPATITIS C
     Dosage: 600 MG, QD
     Route: 048
     Dates: start: 20130123, end: 20130219
  4. REBETOL [Suspect]
     Dosage: 400 MG, QD
     Route: 048
     Dates: start: 20130220
  5. TELAVIC [Suspect]
     Indication: CHRONIC HEPATITIS C
     Dosage: 1500 MG, QD
     Route: 048
     Dates: start: 20130123, end: 20130221
  6. TELAVIC [Suspect]
     Dosage: 1000 MG, QD
     Route: 048
     Dates: start: 20130222
  7. COLONEL [Concomitant]
     Dosage: 3.6 G, QD
     Route: 048
  8. LAC-B [Concomitant]
     Dosage: 3 G, QD
     Route: 048
  9. RIZE [Concomitant]
     Dosage: 5 MG, QD
     Route: 048
  10. LOXONIN [Concomitant]
     Indication: PROPHYLAXIS
     Dosage: 60 MG, QD
     Route: 048
     Dates: start: 20130123

REACTIONS (3)
  - Decreased appetite [Recovered/Resolved]
  - Platelet count decreased [Recovered/Resolved]
  - Malaise [Recovered/Resolved]
